FAERS Safety Report 9119718 (Version 1)
Quarter: 2013Q1

REPORT INFORMATION
  Report Type: Spontaneous
  Country: NL (occurrence: NL)
  Receive Date: 20130226
  Receipt Date: 20130226
  Transmission Date: 20140127
  Serious: Yes (Other)
  Sender: FDA-Public Use
  Company Number: NL-PFIZER INC-2013066169

PATIENT
  Sex: 0

DRUGS (1)
  1. CELEBREX [Suspect]
     Dosage: 100 MG, 2X/DAY
     Dates: start: 2004

REACTIONS (1)
  - Gastric disorder [Unknown]
